FAERS Safety Report 25018415 (Version 1)
Quarter: 2025Q1

REPORT INFORMATION
  Report Type: Spontaneous
  Country: US (occurrence: US)
  Receive Date: 20250227
  Receipt Date: 20250227
  Transmission Date: 20250408
  Serious: No
  Sender: AVADEL CNS PHARMACEUTICALS, LLC
  Company Number: US-AVADEL CNS PHARMACEUTICALS, LLC-2024AVA02483

PATIENT
  Age: 38 Year
  Sex: Female

DRUGS (14)
  1. LUMRYZ [Suspect]
     Active Substance: SODIUM OXYBATE
     Indication: Narcolepsy
     Dosage: 4.5 G, ONCE NIGHTLY
     Route: 048
     Dates: start: 202412, end: 20241217
  2. LUMRYZ [Suspect]
     Active Substance: SODIUM OXYBATE
     Indication: Cataplexy
  3. LUMRYZ [Suspect]
     Active Substance: SODIUM OXYBATE
     Indication: Narcolepsy
     Dosage: 6 G, ONCE NIGHTLY
     Route: 048
     Dates: start: 20241218, end: 202412
  4. LUMRYZ [Suspect]
     Active Substance: SODIUM OXYBATE
     Indication: Cataplexy
     Dosage: 6 G, ONCE NIGHTLY
     Route: 048
  5. UNSPECIFIED INGREDIENT [Suspect]
     Active Substance: UNSPECIFIED INGREDIENT
     Dosage: UNK, ONCE DAILY IN THE MORNING
  6. ALPRAZOLAM [Concomitant]
     Active Substance: ALPRAZOLAM
  7. BACLOFEN [Concomitant]
     Active Substance: BACLOFEN
  8. CETIRIZINE [Concomitant]
     Active Substance: CETIRIZINE HYDROCHLORIDE
  9. FISH OIL [Concomitant]
     Active Substance: FISH OIL
  10. METHYLPHENIDATE [Concomitant]
     Active Substance: METHYLPHENIDATE
  11. VITAMINS NOS [Concomitant]
     Active Substance: VITAMINS
  12. SUNOSI [Concomitant]
     Active Substance: SOLRIAMFETOL
  13. TERBINAFINE [Concomitant]
     Active Substance: TERBINAFINE
  14. VALACYCLOVIR [Concomitant]
     Active Substance: VALACYCLOVIR HYDROCHLORIDE

REACTIONS (18)
  - Initial insomnia [Not Recovered/Not Resolved]
  - Insomnia [Not Recovered/Not Resolved]
  - Feeling abnormal [Not Recovered/Not Resolved]
  - Flatulence [Not Recovered/Not Resolved]
  - Abdominal distension [Not Recovered/Not Resolved]
  - Nasal congestion [Not Recovered/Not Resolved]
  - Discomfort [Not Recovered/Not Resolved]
  - Brain fog [Not Recovered/Not Resolved]
  - Vertigo [Not Recovered/Not Resolved]
  - Diarrhoea [Recovered/Resolved]
  - Nocturia [Not Recovered/Not Resolved]
  - Abdominal pain upper [Not Recovered/Not Resolved]
  - Nausea [Not Recovered/Not Resolved]
  - Dizziness [Not Recovered/Not Resolved]
  - Headache [Not Recovered/Not Resolved]
  - Memory impairment [Not Recovered/Not Resolved]
  - Therapeutic response unexpected [Not Recovered/Not Resolved]
  - Product dose omission issue [Not Recovered/Not Resolved]

NARRATIVE: CASE EVENT DATE: 20241201
